FAERS Safety Report 13206513 (Version 7)
Quarter: 2019Q2

REPORT INFORMATION
  Report Type: Spontaneous
  Country: US (occurrence: US)
  Receive Date: 20170209
  Receipt Date: 20190527
  Transmission Date: 20190711
  Serious: No
  Sender: FDA-Public Use
  Company Number: US-SA-2016SA202809

PATIENT
  Age: 58 Year
  Sex: Female

DRUGS (4)
  1. PRALUENT [Suspect]
     Active Substance: ALIROCUMAB
     Indication: TYPE IIA HYPERLIPIDAEMIA
     Dosage: 75 MG,QOW
     Route: 058
     Dates: start: 201604
  2. ALIROCUMAB PREFILLED PEN [Suspect]
     Active Substance: ALIROCUMAB
     Indication: TYPE IIA HYPERLIPIDAEMIA
     Dosage: 75 MG, QOW
     Route: 058
     Dates: start: 201604
  3. ALIROCUMAB PREFILLED PEN [Suspect]
     Active Substance: ALIROCUMAB
     Dosage: 75 MG, QOW
     Route: 058
     Dates: start: 20161008
  4. PRALUENT [Suspect]
     Active Substance: ALIROCUMAB
     Dosage: 75 MG,QOW
     Route: 058
     Dates: start: 20161008

REACTIONS (12)
  - Device use issue [Unknown]
  - Diarrhoea [Not Recovered/Not Resolved]
  - Muscle spasms [Not Recovered/Not Resolved]
  - Contusion [Unknown]
  - Injection site pain [Unknown]
  - Pain in extremity [Not Recovered/Not Resolved]
  - Rash [Unknown]
  - Diarrhoea [Not Recovered/Not Resolved]
  - Lipoma [Not Recovered/Not Resolved]
  - Cough [Recovering/Resolving]
  - Sinusitis [Not Recovered/Not Resolved]
  - Incorrect dose administered [Unknown]

NARRATIVE: CASE EVENT DATE: 20161009
